FAERS Safety Report 4775377-8 (Version None)
Quarter: 2005Q3

REPORT INFORMATION
  Report Type: 
  Country: None (occurrence: None)
  Receive Date: 20050920
  Receipt Date: 20050915
  Transmission Date: 20060218
  Serious: Yes (Other)
  Sender: FDA-Public Use
  Company Number: 200513216BCC

PATIENT
  Age: 82 Year
  Sex: Female
  Weight: 63.5036 kg

DRUGS (5)
  1. PHILLIP'S MINT (MAGNESIUM HYDROXIDE) [Suspect]
     Indication: CONSTIPATION
     Dosage: 30 ML, TOTAL DAILY, ORAL
     Route: 048
     Dates: start: 20050721
  2. COUMADIN [Concomitant]
  3. NORVASC [Concomitant]
  4. BENICAR [Concomitant]
  5. DIURETIC [Concomitant]

REACTIONS (1)
  - HAEMORRHAGE [None]
